FAERS Safety Report 14516860 (Version 1)
Quarter: 2018Q1

REPORT INFORMATION
  Report Type: Spontaneous
  Country: US (occurrence: US)
  Receive Date: 20180212
  Receipt Date: 20180212
  Transmission Date: 20180509
  Serious: Yes (Hospitalization)
  Sender: FDA-Public Use
  Company Number: US-BEH-2018087607

PATIENT
  Age: 83 Year
  Sex: Female
  Weight: 118.82 kg

DRUGS (23)
  1. METOPROLOL. [Concomitant]
     Active Substance: METOPROLOL
  2. LASIX [Concomitant]
     Active Substance: FUROSEMIDE
  3. CALCIUM+D3 [Concomitant]
  4. HIZENTRA [Suspect]
     Active Substance: HUMAN IMMUNOGLOBULIN G
     Indication: IMMUNODEFICIENCY COMMON VARIABLE
     Dosage: 12 G, UNK
     Route: 058
     Dates: start: 20170712
  5. DIPHENHYDRAMINE. [Concomitant]
     Active Substance: DIPHENHYDRAMINE
  6. EPINEPHRINE. [Concomitant]
     Active Substance: EPINEPHRINE
  7. ALBUTEROL                          /00139501/ [Concomitant]
     Active Substance: ALBUTEROL
  8. PROBIOTIC                          /06395501/ [Concomitant]
     Active Substance: BIFIDOBACTERIUM ANIMALIS LACTIS
  9. NUCYNTA [Concomitant]
     Active Substance: TAPENTADOL HYDROCHLORIDE
  10. HIZENTRA [Suspect]
     Active Substance: HUMAN IMMUNOGLOBULIN G
     Dosage: UNK
     Route: 058
  11. ASPIRIN. [Concomitant]
     Active Substance: ASPIRIN
  12. BUPROPION. [Concomitant]
     Active Substance: BUPROPION
  13. VITAMIN K [Concomitant]
     Active Substance: PHYTONADIONE
  14. TELMISARTAN. [Concomitant]
     Active Substance: TELMISARTAN
  15. ACETAMINOPHEN. [Concomitant]
     Active Substance: ACETAMINOPHEN
  16. LIDOCAINE. [Concomitant]
     Active Substance: LIDOCAINE
  17. BUDESONIDE. [Concomitant]
     Active Substance: BUDESONIDE
  18. TRIAMTERENE AND HYDROCHLOROTHIAZID [Concomitant]
     Active Substance: HYDROCHLOROTHIAZIDE\TRIAMTERENE
  19. HIZENTRA [Suspect]
     Active Substance: HUMAN IMMUNOGLOBULIN G
     Dosage: UNK
     Route: 058
  20. OLODATEROL [Concomitant]
     Active Substance: OLODATEROL
  21. ESCITALOPRAM [Concomitant]
     Active Substance: ESCITALOPRAM OXALATE
  22. PRAVASTATIN. [Concomitant]
     Active Substance: PRAVASTATIN
  23. TIOTROPIUM BROMIDE [Concomitant]
     Active Substance: TIOTROPIUM BROMIDE

REACTIONS (6)
  - Pneumonia [Unknown]
  - Rhinorrhoea [Unknown]
  - Cough [Unknown]
  - Pyrexia [Unknown]
  - Myalgia [Unknown]
  - Atrial fibrillation [Unknown]

NARRATIVE: CASE EVENT DATE: 2018
